FAERS Safety Report 6161138-4 (Version None)
Quarter: 2009Q2

REPORT INFORMATION
  Report Type: 
  Country: None (occurrence: None)
  Receive Date: 20090417
  Receipt Date: 20090417
  Transmission Date: 20091009
  Serious: Yes (Other)
  Sender: FDA-Public Use
  Company Number: None

PATIENT
  Age: 35 Year
  Sex: Male
  Weight: 75.2971 kg

DRUGS (1)
  1. LEVAQUIN [Suspect]
     Indication: SINUSITIS
     Dosage: 1 TABLET ONCE DAILY
     Dates: start: 20090306, end: 20090307

REACTIONS (9)
  - ANXIETY [None]
  - DEPRESSION [None]
  - FEELING ABNORMAL [None]
  - FEELING OF DESPAIR [None]
  - HYPOAESTHESIA [None]
  - PANIC ATTACK [None]
  - PARAESTHESIA [None]
  - PERIPHERAL COLDNESS [None]
  - VISUAL IMPAIRMENT [None]
